FAERS Safety Report 7308930-8 (Version None)
Quarter: 2011Q1

REPORT INFORMATION
  Report Type: 
  Country: None (occurrence: None)
  Receive Date: 20110210
  Receipt Date: 20110201
  Transmission Date: 20110831
  Serious: Yes (Hospitalization)
  Sender: FDA-Public Use
  Company Number: 2009AC000072

PATIENT
  Age: 46 Year
  Sex: Male
  Weight: 147.8726 kg

DRUGS (50)
  1. LISINOPRIL [Concomitant]
  2. LUNESTA [Concomitant]
  3. XOPENEX [Concomitant]
  4. LEVOTHYROXINE [Concomitant]
  5. LASIX [Concomitant]
  6. ALLOPURINOL [Concomitant]
  7. SPIRONOLACTONE [Concomitant]
  8. ADVAIR DISKUS 100/50 [Concomitant]
  9. FUROSEMIDE [Concomitant]
  10. HYDROCORDONE [Concomitant]
  11. VIAGRA [Concomitant]
  12. PACERONE [Concomitant]
  13. DARVOCET [Concomitant]
  14. SPIRONOLACTONE [Concomitant]
  15. POTASSIUM CHLORIDE [Concomitant]
  16. LISINOPRIL [Concomitant]
  17. AMBIEN [Concomitant]
  18. ADVAIR DISKUS 100/50 [Concomitant]
  19. BYETTA [Concomitant]
  20. XENICAL [Concomitant]
  21. WARFARIN [Concomitant]
  22. NASONEX [Concomitant]
  23. LASIX [Concomitant]
  24. MAGNESIUM OXIDE [Concomitant]
  25. AMIODARONE [Concomitant]
  26. TORESEMIDE [Concomitant]
  27. METOLAZONE [Concomitant]
  28. POTASSIUM [Concomitant]
  29. TIKOSYN [Concomitant]
  30. COREG [Concomitant]
  31. KLOR-CON [Concomitant]
  32. AMIODARONE [Concomitant]
  33. COUMADIN [Concomitant]
  34. COREG [Concomitant]
  35. METOLAZONE [Concomitant]
  36. DIGOXIN [Suspect]
     Dosage: (0.25 MG; QD; PO) (0.125 MG; QD; PO)
     Route: 048
     Dates: start: 20051001, end: 20070501
  37. SYNTHROID [Concomitant]
  38. SINGULAIR [Concomitant]
  39. COREG [Concomitant]
  40. THYROLAR [Concomitant]
  41. ORLISTAT [Concomitant]
  42. POTASSIUM CHLORIDE [Concomitant]
  43. SIMETHICONE [Concomitant]
  44. KEFLEX [Concomitant]
  45. DEMADEX [Concomitant]
  46. ZYRTEC [Concomitant]
  47. LEVAQUIN [Concomitant]
  48. NIASPAN [Concomitant]
  49. AMOXICILLIN [Concomitant]
  50. LEVAQUIN [Concomitant]

REACTIONS (41)
  - AORTIC VALVE CALCIFICATION [None]
  - FLUID RETENTION [None]
  - RENAL FAILURE ACUTE [None]
  - TOXICITY TO VARIOUS AGENTS [None]
  - FATIGUE [None]
  - BLOOD POTASSIUM DECREASED [None]
  - DIZZINESS [None]
  - ATRIAL FIBRILLATION [None]
  - CARDIOACTIVE DRUG LEVEL INCREASED [None]
  - VIRAL INFECTION [None]
  - SUPRAVENTRICULAR EXTRASYSTOLES [None]
  - PULMONARY ARTERIAL PRESSURE INCREASED [None]
  - BRADYCARDIA [None]
  - BRAIN NATRIURETIC PEPTIDE INCREASED [None]
  - EXERCISE TOLERANCE DECREASED [None]
  - SLEEP APNOEA SYNDROME [None]
  - FALL [None]
  - TYPE 2 DIABETES MELLITUS [None]
  - BLOOD GLUCOSE INCREASED [None]
  - PALPITATIONS [None]
  - HEPATITIS [None]
  - CARDIOMYOPATHY [None]
  - HYPOTHYROIDISM [None]
  - BLOOD CHLORIDE DECREASED [None]
  - ECONOMIC PROBLEM [None]
  - CHOLECYSTITIS ACUTE [None]
  - WEIGHT DECREASED [None]
  - HIGH DENSITY LIPOPROTEIN DECREASED [None]
  - MITRAL VALVE INCOMPETENCE [None]
  - MULTIPLE INJURIES [None]
  - EJECTION FRACTION DECREASED [None]
  - BLOOD POTASSIUM INCREASED [None]
  - CARDIAC FAILURE [None]
  - LEUKOCYTOSIS [None]
  - DECREASED APPETITE [None]
  - HYPOTENSION [None]
  - PULMONARY CONGESTION [None]
  - VENTRICULAR TACHYCARDIA [None]
  - CARDIAC FAILURE CONGESTIVE [None]
  - URINARY RETENTION [None]
  - DYSLIPIDAEMIA [None]
